FAERS Safety Report 26135350 (Version 1)
Quarter: 2025Q4

REPORT INFORMATION
  Report Type: Spontaneous
  Country: US (occurrence: US)
  Receive Date: 20251209
  Receipt Date: 20251209
  Transmission Date: 20260118
  Serious: Yes (Other)
  Sender: GLENMARK
  Company Number: US-MLMSERVICE-20251121-PI721954-00138-1

PATIENT
  Age: 24 Year
  Sex: Male

DRUGS (3)
  1. ESTRADIOL [Suspect]
     Active Substance: ESTRADIOL
     Indication: Hormone therapy
     Dosage: UNK (ORAL TABLETS FOR 3 YEARS, THEN SWITCHED TO INTRAMUSCULAR (IM) INJECTIONS 1 YEAR PRIOR TO PRESEN
     Route: 048
  2. ESTRADIOL [Suspect]
     Active Substance: ESTRADIOL
     Dosage: 8 MILLIGRAM, QW (ORAL TABLETS FOR 3 YEARS, THEN SWITCHED TO INTRAMUSCULAR (IM) INJECTIONS 1 YEAR PRI
     Route: 030
  3. PROGESTERONE [Suspect]
     Active Substance: PROGESTERONE
     Indication: Hormone therapy
     Dosage: 100 MILLIGRAM, OD
     Route: 065

REACTIONS (1)
  - Phyllodes tumour [Unknown]
